FAERS Safety Report 9650115 (Version 2)
Quarter: 2013Q4

REPORT INFORMATION
  Report Type: Spontaneous
  Country: US (occurrence: US)
  Receive Date: 20131028
  Receipt Date: 20131028
  Transmission Date: 20140711
  Serious: Yes (Other)
  Sender: FDA-Public Use
  Company Number: US-NAPPMUNDI-USA-2012-0096967

PATIENT
  Sex: Male

DRUGS (3)
  1. OXYCONTIN (NDA 22-272) [Suspect]
     Indication: DIABETIC NEUROPATHY
     Dosage: 80 MG, BID
     Route: 048
  2. ROXICODONE [Concomitant]
     Indication: NEUROPATHY PERIPHERAL
     Dosage: 30 MG, BID
     Route: 048
  3. CYMBALTA [Concomitant]
     Indication: MOOD SWINGS
     Dosage: 1 TABLET, DAILY
     Route: 048

REACTIONS (1)
  - Drug dependence [Unknown]
